FAERS Safety Report 7231153-8 (Version None)
Quarter: 2011Q1

REPORT INFORMATION
  Report Type: 
  Country: None (occurrence: None)
  Receive Date: 20110118
  Receipt Date: 20110103
  Transmission Date: 20110831
  Serious: Yes (Congenital Anomaly)
  Sender: FDA-Public Use
  Company Number: A0681915A

PATIENT
  Sex: Male
  Weight: 2.9 kg

DRUGS (7)
  1. PAXIL CR [Suspect]
     Indication: ANXIETY
     Dosage: 12.5MG AS REQUIRED
     Dates: start: 20050901
  2. ZANTAC [Concomitant]
  3. PAXIL [Suspect]
     Indication: ANXIETY
     Dosage: 10MG PER DAY
     Dates: start: 20050920
  4. PAROXETINE HYDROCHLORIDE [Suspect]
     Indication: ANXIETY
     Dosage: 10MG PER DAY
     Dates: start: 20050815, end: 20070101
  5. PRENATAL VITAMINS [Concomitant]
  6. ALBUTEROL [Concomitant]
  7. ADVAIR [Concomitant]
     Indication: ASTHMA

REACTIONS (12)
  - ATRIAL SEPTAL DEFECT [None]
  - CARDIAC MURMUR [None]
  - SCREAMING [None]
  - CARDIAC ANEURYSM [None]
  - PULMONARY VALVE STENOSIS [None]
  - CARDIAC FAILURE CONGESTIVE [None]
  - PULMONARY HYPERTENSION [None]
  - DRUG EXPOSURE DURING PREGNANCY [None]
  - VENTRICULAR SEPTAL DEFECT [None]
  - VACUUM EXTRACTOR DELIVERY [None]
  - VENTRICULAR HYPERTROPHY [None]
  - FEEDING DISORDER NEONATAL [None]
